FAERS Safety Report 9640635 (Version 2)
Quarter: 2013Q4

REPORT INFORMATION
  Report Type: Spontaneous
  Country: IT (occurrence: IT)
  Receive Date: 20131023
  Receipt Date: 20131031
  Transmission Date: 20140711
  Serious: Yes (Hospitalization, Other)
  Sender: FDA-Public Use
  Company Number: IT-PFIZER INC-2013292909

PATIENT
  Age: 89 Year
  Sex: Male

DRUGS (4)
  1. TRIATEC [Suspect]
     Dosage: UNK
     Route: 065
  2. PLAVIX [Suspect]
     Dosage: UNK
     Route: 065
  3. MINITRAN [Suspect]
     Dosage: 10 MG, DAILY
     Route: 065
  4. LASIX [Suspect]
     Route: 065

REACTIONS (4)
  - Urticaria [Recovering/Resolving]
  - Transaminases increased [Recovering/Resolving]
  - Ischaemic cardiomyopathy [Unknown]
  - Cholelithiasis [Unknown]
